FAERS Safety Report 19857622 (Version 1)
Quarter: 2021Q3

REPORT INFORMATION
  Report Type: Spontaneous
  Country: IT (occurrence: IT)
  Receive Date: 20210920
  Receipt Date: 20210920
  Transmission Date: 20211014
  Serious: Yes (Other)
  Sender: FDA-Public Use
  Company Number: NVSC2021IT202087

PATIENT
  Age: 20 Year
  Sex: Female

DRUGS (14)
  1. N?ACETYLCYSTEINE [Suspect]
     Active Substance: ACETYLCYSTEINE
     Indication: COAGULOPATHY
  2. CERTOLIZUMAB PEGOL [Suspect]
     Active Substance: CERTOLIZUMAB PEGOL
     Dosage: UNK, EV 2 WEEKS (QOW)
     Route: 065
  3. GLUTATHIONE [Suspect]
     Active Substance: GLUTATHIONE
     Indication: COAGULOPATHY
  4. ACETAMINOPHEN (PARACETAMOL) [Suspect]
     Active Substance: ACETAMINOPHEN
     Indication: ARTHRALGIA
     Dosage: 5?6 G, QD
     Route: 065
  5. PREDNISONE. [Suspect]
     Active Substance: PREDNISONE
     Indication: PYREXIA
     Dosage: 7.5 MG, QD
     Route: 065
  6. URSODESOXYCHOLIC ACID [Suspect]
     Active Substance: URSODIOL
     Indication: TRANSAMINASES INCREASED
     Dosage: UNK
     Route: 065
  7. ACETAMINOPHEN (PARACETAMOL) [Suspect]
     Active Substance: ACETAMINOPHEN
     Indication: PYREXIA
     Dosage: 1?2 G, QD
     Route: 065
  8. ACETAMINOPHEN (PARACETAMOL) [Suspect]
     Active Substance: ACETAMINOPHEN
     Indication: STILL^S DISEASE
  9. N?ACETYLCYSTEINE [Suspect]
     Active Substance: ACETYLCYSTEINE
     Indication: TRANSAMINASES INCREASED
     Dosage: UNK
     Route: 065
  10. GLUTATHIONE [Suspect]
     Active Substance: GLUTATHIONE
     Indication: TRANSAMINASES INCREASED
     Dosage: UNK
     Route: 065
  11. PREDNISONE. [Suspect]
     Active Substance: PREDNISONE
     Indication: STILL^S DISEASE
  12. CERTOLIZUMAB PEGOL [Suspect]
     Active Substance: CERTOLIZUMAB PEGOL
     Indication: STILL^S DISEASE
     Dosage: UNK, Q2MO
     Route: 058
  13. PREDNISONE. [Suspect]
     Active Substance: PREDNISONE
     Indication: ARTHRALGIA
     Dosage: 15 MG, QD
     Route: 065
  14. URSODESOXYCHOLIC ACID [Suspect]
     Active Substance: URSODIOL
     Indication: COAGULOPATHY

REACTIONS (2)
  - Maternal exposure during pregnancy [Unknown]
  - Premature delivery [Unknown]
